FAERS Safety Report 18214788 (Version 2)
Quarter: 2020Q4

REPORT INFORMATION
  Report Type: Spontaneous
  Country: US (occurrence: US)
  Receive Date: 20200831
  Receipt Date: 20201016
  Transmission Date: 20210113
  Serious: No
  Sender: FDA-Public Use
  Company Number: US-ALEXION-A202012421

PATIENT
  Sex: Female
  Weight: 7.71 kg

DRUGS (1)
  1. KANUMA [Suspect]
     Active Substance: SEBELIPASE ALFA
     Indication: PRODUCT USED FOR UNKNOWN INDICATION
     Route: 065

REACTIONS (5)
  - Dysstasia [Unknown]
  - Malaise [Unknown]
  - Decreased appetite [Unknown]
  - Rhinorrhoea [Unknown]
  - Diarrhoea [Unknown]
